FAERS Safety Report 11255243 (Version 1)
Quarter: 2015Q3

REPORT INFORMATION
  Report Type: Spontaneous
  Country: US (occurrence: US)
  Receive Date: 20150709
  Receipt Date: 20150709
  Transmission Date: 20151125
  Serious: No
  Sender: FDA-Public Use
  Company Number: US-SA-2015SA029714

PATIENT
  Sex: Female

DRUGS (2)
  1. AMARYL [Suspect]
     Active Substance: GLIMEPIRIDE
     Route: 065
  2. VICTOZA [Suspect]
     Active Substance: LIRAGLUTIDE
     Route: 065

REACTIONS (8)
  - Dry mouth [Unknown]
  - Asthenia [Unknown]
  - Diarrhoea [Unknown]
  - Hypoglycaemia [Unknown]
  - Pruritus [Unknown]
  - Decreased appetite [Unknown]
  - Nausea [Unknown]
  - Injection site pruritus [Unknown]
